FAERS Safety Report 7326523-3 (Version None)
Quarter: 2011Q1

REPORT INFORMATION
  Report Type: 
  Country: None (occurrence: None)
  Receive Date: 20110302
  Receipt Date: 20110214
  Transmission Date: 20110831
  Serious: Yes (Hospitalization, Other)
  Sender: FDA-Public Use
  Company Number: US-BAYER-201038350NA

PATIENT
  Sex: Female

DRUGS (1)
  1. YAZ [Suspect]
     Indication: PRODUCT USED FOR UNKNOWN INDICATION
     Route: 048
     Dates: start: 20071101, end: 20080301

REACTIONS (7)
  - PANCREATITIS [None]
  - NAUSEA [None]
  - CHOLELITHIASIS [None]
  - PAIN [None]
  - POST CHOLECYSTECTOMY SYNDROME [None]
  - JAUNDICE [None]
  - VOMITING [None]
